FAERS Safety Report 25141175 (Version 1)
Quarter: 2025Q2

REPORT INFORMATION
  Report Type: Spontaneous
  Country: AT (occurrence: None)
  Receive Date: 20250330
  Receipt Date: 20250330
  Transmission Date: 20250716
  Serious: Yes (Disabling)
  Sender: FDA-CTU
  Company Number: None

PATIENT
  Age: 33 Year
  Sex: Male
  Weight: 75 kg

DRUGS (5)
  1. PAROXETINE HYDROCHLORIDE [Suspect]
     Active Substance: PAROXETINE HYDROCHLORIDE
     Indication: Obsessive-compulsive disorder
     Dates: start: 20230913, end: 20241212
  2. WELLBUTRIN [Concomitant]
     Active Substance: BUPROPION HYDROCHLORIDE
  3. VITAMIN D [Concomitant]
     Active Substance: VITAMIN D NOS
  4. VITAMIN B [Concomitant]
     Active Substance: VITAMIN B
  5. L-Arginin [Concomitant]

REACTIONS (9)
  - Sexual dysfunction [None]
  - Libido decreased [None]
  - Premature ejaculation [None]
  - Orgasmic sensation decreased [None]
  - Sexual dysfunction [None]
  - Emotional disorder [None]
  - Anhedonia [None]
  - Depersonalisation/derealisation disorder [None]
  - Derealisation [None]

NARRATIVE: CASE EVENT DATE: 20240110
